FAERS Safety Report 13579744 (Version 1)
Quarter: 2017Q2

REPORT INFORMATION
  Report Type: Spontaneous
  Country: US (occurrence: US)
  Receive Date: 20170525
  Receipt Date: 20170525
  Transmission Date: 20170830
  Serious: Yes (Other)
  Sender: FDA-Public Use
  Company Number: US-CLINIGEN GROUP PLC/ CLINIGEN HEALTHCARE LTD-E2B_00006221

PATIENT
  Age: 37 Year
  Sex: Male
  Weight: 60 kg

DRUGS (5)
  1. AMPHOTERICIN B. [Concomitant]
     Active Substance: AMPHOTERICIN B
     Indication: CANDIDA INFECTION
     Dosage: DOSE: 30 MG TOTAL DAILY DOSE: 30 MG
     Route: 042
     Dates: start: 19940210, end: 19940219
  2. FOSCAVIR [Suspect]
     Active Substance: FOSCARNET SODIUM
     Dosage: DOSE: 100 MG/KG TOTAL DAILY DOSE: 100 MG/KG
     Route: 042
     Dates: start: 19940224
  3. NORMAL SALINE [Concomitant]
     Active Substance: SODIUM CHLORIDE
     Indication: DEHYDRATION
     Dosage: DOSE: 2  TOTAL DAILY DOSE: 2
     Route: 042
     Dates: start: 19940210, end: 19940219
  4. FOSCAVIR [Suspect]
     Active Substance: FOSCARNET SODIUM
     Indication: CYTOMEGALOVIRUS CHORIORETINITIS
     Dosage: DOSE: 60 MG/KG TOTAL DAILY DOSE: 180 MG/KG
     Route: 042
     Dates: start: 19940209, end: 19940223
  5. DAPSONE. [Concomitant]
     Active Substance: DAPSONE
     Dosage: DOSE: 50 MG TOTAL DAILY DOSE: 50 MG
     Route: 048

REACTIONS (1)
  - Renal impairment [Recovered/Resolved]

NARRATIVE: CASE EVENT DATE: 19940213
